FAERS Safety Report 23250139 (Version 1)
Quarter: 2023Q4

REPORT INFORMATION
  Report Type: Other
  Country: BR (occurrence: None)
  Receive Date: 20231201
  Receipt Date: 20231201
  Transmission Date: 20240109
  Serious: Yes (Other)
  Sender: FDA-Public Use
  Company Number: BR-ROCHE-3465203

PATIENT
  Age: 45 Year
  Sex: Female
  Weight: 60 kg

DRUGS (1)
  1. ACTEMRA [Suspect]
     Active Substance: TOCILIZUMAB
     Indication: Rheumatoid arthritis
     Route: 042
     Dates: start: 20220225

REACTIONS (5)
  - Breast cancer [Unknown]
  - Glaucoma [Unknown]
  - Nasopharyngitis [Recovered/Resolved]
  - Tooth extraction [Recovered/Resolved]
  - Immunodeficiency [Recovered/Resolved]
